FAERS Safety Report 6287434-8 (Version None)
Quarter: 2009Q3

REPORT INFORMATION
  Report Type: 
  Country: None (occurrence: None)
  Receive Date: 20090728
  Receipt Date: 20090716
  Transmission Date: 20100115
  Serious: Yes (Death, Other)
  Sender: FDA-Public Use
  Company Number: US-TYCO HEALTHCARE/MALLINCKRODT-T200901313

PATIENT
  Sex: Male

DRUGS (5)
  1. OPTIMARK [Suspect]
     Indication: ANGIOGRAM
     Dosage: UNK
     Dates: start: 20040126, end: 20040126
  2. OPTIMARK [Suspect]
     Dosage: UNK
     Dates: start: 20040312, end: 20040312
  3. MAGNEVIST [Suspect]
     Dosage: UNK
     Dates: start: 20021220, end: 20021220
  4. MAGNEVIST [Suspect]
     Dosage: UNK
     Dates: start: 20030513, end: 20030513
  5. OMNISCAN [Suspect]
     Dosage: UNK
     Dates: start: 20031201, end: 20031201

REACTIONS (2)
  - NEPHROGENIC SYSTEMIC FIBROSIS [None]
  - OFF LABEL USE [None]
